FAERS Safety Report 12172444 (Version 3)
Quarter: 2016Q2

REPORT INFORMATION
  Report Type: Spontaneous
  Country: JP (occurrence: JP)
  Receive Date: 20160311
  Receipt Date: 20160427
  Transmission Date: 20160815
  Serious: Yes (Hospitalization)
  Sender: FDA-Public Use
  Company Number: JP-DSJP-DSJ-2016-108815

PATIENT

DRUGS (1)
  1. LIXIANA TABLETS [Suspect]
     Active Substance: EDOXABAN TOSILATE MONOHYDRATE
     Indication: ATRIAL FIBRILLATION
     Dosage: 15MG/DAY
     Route: 065

REACTIONS (6)
  - Anaemia [Not Recovered/Not Resolved]
  - Underdose [Unknown]
  - Cough [Not Recovered/Not Resolved]
  - Cardiac failure [Not Recovered/Not Resolved]
  - Off label use [Unknown]
  - Renal impairment [Not Recovered/Not Resolved]
